FAERS Safety Report 9404354 (Version 2)
Quarter: 2013Q3

REPORT INFORMATION
  Report Type: Spontaneous
  Country: US (occurrence: US)
  Receive Date: 20130717
  Receipt Date: 20130813
  Transmission Date: 20140515
  Serious: Yes (Other)
  Sender: FDA-Public Use
  Company Number: US-BAYER-2013-085848

PATIENT
  Age: 41 Year
  Sex: Female

DRUGS (1)
  1. MIRENA [Suspect]
     Indication: CONTRACEPTION
     Dosage: 20 MCG/24HR, CONT
     Route: 015
     Dates: start: 20120918, end: 20130606

REACTIONS (6)
  - Device dislocation [None]
  - Pelvic pain [Recovered/Resolved]
  - Medical device discomfort [None]
  - Bacterial vaginosis [None]
  - Fungal infection [None]
  - Urinary tract infection [None]
